FAERS Safety Report 6612574-0 (Version None)
Quarter: 2010Q1

REPORT INFORMATION
  Report Type: 
  Country: None (occurrence: None)
  Receive Date: 20100303
  Receipt Date: 20100122
  Transmission Date: 20100710
  Serious: Yes (Hospitalization, Other)
  Sender: FDA-Public Use
  Company Number: US-BAXTER-2008BH001545

PATIENT
  Age: 55 Year
  Sex: Female
  Weight: 86 kg

DRUGS (16)
  1. HEPARIN SODIUM INJECTION [Suspect]
     Indication: THROMBOSIS PROPHYLAXIS
     Route: 042
     Dates: start: 20071114, end: 20080117
  2. HEPARIN SODIUM INJECTION [Suspect]
     Route: 042
  3. COREG [Concomitant]
     Indication: CARDIAC DISORDER
     Route: 048
     Dates: start: 20070101
  4. COZAAR [Concomitant]
     Indication: CARDIAC DISORDER
     Route: 048
     Dates: start: 20070101
  5. NEPHROCAPS [Concomitant]
     Indication: VITAMIN SUPPLEMENTATION
     Route: 048
  6. TUMS [Concomitant]
     Indication: MINERAL SUPPLEMENTATION
     Route: 048
  7. DIPHENHYDRAMINE HCL [Concomitant]
     Indication: PROPHYLAXIS
     Route: 058
  8. NASONEX [Concomitant]
     Indication: COUGH
     Route: 045
     Dates: start: 20080101
  9. ADVAIR DISKUS 100/50 [Concomitant]
     Indication: COUGH
     Route: 048
     Dates: start: 20080101
  10. ALBUTEROL [Concomitant]
     Indication: COUGH
     Route: 065
     Dates: start: 20080101
  11. CALCIUM CARBONATE [Concomitant]
     Indication: DRUG USE FOR UNKNOWN INDICATION
     Route: 065
  12. CALCITRIOL [Concomitant]
     Indication: DRUG USE FOR UNKNOWN INDICATION
     Route: 065
  13. IRON [Concomitant]
     Indication: DRUG USE FOR UNKNOWN INDICATION
     Route: 065
  14. EPOGEN [Concomitant]
     Indication: DRUG USE FOR UNKNOWN INDICATION
     Route: 065
  15. PREVACID [Concomitant]
     Indication: DRUG USE FOR UNKNOWN INDICATION
     Route: 065
  16. FOLIC ACID [Concomitant]
     Indication: DRUG USE FOR UNKNOWN INDICATION
     Route: 065

REACTIONS (6)
  - BRONCHIAL HYPERREACTIVITY [None]
  - CARDIAC ARREST [None]
  - CARDIOMYOPATHY [None]
  - HYPERSENSITIVITY [None]
  - LABILE BLOOD PRESSURE [None]
  - VENTRICULAR TACHYCARDIA [None]
